FAERS Safety Report 9167893 (Version 1)
Quarter: 2013Q1

REPORT INFORMATION
  Report Type: Spontaneous
  Country: FR (occurrence: None)
  Receive Date: 20130304
  Receipt Date: 20130304
  Transmission Date: 20140127
  Serious: Yes (Hospitalization)
  Sender: FDA-Public Use
  Company Number: 0220078

PATIENT
  Age: 59 Year
  Sex: Male

DRUGS (1)
  1. TACHOSIL [Suspect]
     Indication: TISSUE SEALING
     Dates: start: 20110704

REACTIONS (4)
  - Drug effect decreased [None]
  - Rhinorrhoea [None]
  - Cerebrospinal fluid leakage [None]
  - Surgical procedure repeated [None]
